FAERS Safety Report 15335345 (Version 1)
Quarter: 2018Q3

REPORT INFORMATION
  Report Type: Spontaneous
  Country: IE (occurrence: IE)
  Receive Date: 20180830
  Receipt Date: 20180830
  Transmission Date: 20181010
  Serious: Yes (Life-Threatening, Hospitalization)
  Sender: FDA-Public Use
  Company Number: PHHY2018IE039030

PATIENT
  Age: 79 Year
  Sex: Male

DRUGS (1)
  1. OMEPRAZOLE. [Suspect]
     Active Substance: OMEPRAZOLE
     Indication: PEPTIC ULCER
     Route: 065

REACTIONS (7)
  - Hypocalcaemia [Recovered/Resolved]
  - Myopathy [Recovering/Resolving]
  - Electrocardiogram QT prolonged [Recovering/Resolving]
  - Paraesthesia [Recovered/Resolved]
  - Hypoparathyroidism [Recovering/Resolving]
  - Hypomagnesaemia [Recovered/Resolved]
  - Asthenia [Recovered/Resolved]
